FAERS Safety Report 4712789-2 (Version None)
Quarter: 2005Q3

REPORT INFORMATION
  Report Type: 
  Country: None (occurrence: None)
  Receive Date: 20050712
  Receipt Date: 20050712
  Transmission Date: 20060218
  Serious: Yes (Death)
  Sender: FDA-Public Use
  Company Number: None

PATIENT
  Age: 17 Year
  Sex: Male
  Weight: 65.7716 kg

DRUGS (2)
  1. CYMBALTA [Suspect]
     Indication: DEPRESSION
     Dosage: 60 MG
     Dates: start: 20041201, end: 20050401
  2. RISPERDAL [Suspect]
     Indication: DEPRESSION
     Dosage: 0.25 MG
     Dates: start: 20041201, end: 20050401

REACTIONS (5)
  - COMPLETED SUICIDE [None]
  - DRUG DOSE OMISSION [None]
  - NIGHTMARE [None]
  - TREATMENT NONCOMPLIANCE [None]
  - UNEVALUABLE EVENT [None]
